FAERS Safety Report 11444673 (Version 1)
Quarter: 2015Q3

REPORT INFORMATION
  Report Type: Spontaneous
  Country: US (occurrence: None)
  Receive Date: 20150831
  Receipt Date: 20150831
  Transmission Date: 20151125
  Serious: Yes (Disabling)
  Sender: FDA-Public Use
  Company Number: None

PATIENT
  Age: 61 Year
  Sex: Female
  Weight: 136.08 kg

DRUGS (14)
  1. DILTIAZEM [Concomitant]
     Active Substance: DILTIAZEM
  2. LEVOFLOXACIN. [Suspect]
     Active Substance: LEVOFLOXACIN
     Indication: PNEUMONIA
     Dosage: 10 PILLS
     Route: 048
     Dates: start: 20150805, end: 20150815
  3. BABY ASPIRIN [Concomitant]
     Active Substance: ASPIRIN
  4. MULTIPLE VITAMIN FOR WOMEN [Concomitant]
  5. MAGNESIUM [Concomitant]
     Active Substance: MAGNESIUM
  6. TRIPLE OMEGA [Concomitant]
  7. GINGER. [Concomitant]
     Active Substance: GINGER
  8. PROBIOTIC [Concomitant]
     Active Substance: PROBIOTICS NOS
  9. INSULIN [Concomitant]
     Active Substance: INSULIN NOS
  10. HCTZ [Concomitant]
     Active Substance: HYDROCHLOROTHIAZIDE
  11. METFORMIN [Concomitant]
     Active Substance: METFORMIN HYDROCHLORIDE
  12. GLIMIPERIDE [Concomitant]
  13. LOSARTAN. [Concomitant]
     Active Substance: LOSARTAN
  14. ATENOLOL. [Concomitant]
     Active Substance: ATENOLOL

REACTIONS (3)
  - Oral mucosal blistering [None]
  - Mouth swelling [None]
  - Arthralgia [None]

NARRATIVE: CASE EVENT DATE: 20150730
